FAERS Safety Report 6315613-X (Version None)
Quarter: 2009Q3

REPORT INFORMATION
  Report Type: 
  Country: None (occurrence: None)
  Receive Date: 20090818
  Receipt Date: 20090803
  Transmission Date: 20100115
  Serious: Yes (Hospitalization)
  Sender: FDA-Public Use
  Company Number: 001423

PATIENT
  Sex: Male

DRUGS (5)
  1. VIMPAT [Suspect]
     Indication: EPILEPSY
     Dosage: (200 MG QD, UP-TITRATION TO 200 MG ONCE DAILY OVER 6 WEEKS) ; (150 MG QD)
     Dates: start: 20090601, end: 20090701
  2. VIMPAT [Suspect]
     Indication: EPILEPSY
     Dosage: (200 MG QD, UP-TITRATION TO 200 MG ONCE DAILY OVER 6 WEEKS) ; (150 MG QD)
     Dates: start: 20090701
  3. VALPROATE SODIUM [Concomitant]
  4. TOPIRAMATE [Concomitant]
  5. OLANZAPINE [Concomitant]

REACTIONS (2)
  - AGGRESSION [None]
  - CONVULSION [None]
